FAERS Safety Report 7698816-1 (Version None)
Quarter: 2011Q3

REPORT INFORMATION
  Report Type: 
  Country: None (occurrence: None)
  Receive Date: 20110819
  Receipt Date: 20110815
  Transmission Date: 20111222
  Serious: Yes (Hospitalization, Other)
  Sender: FDA-Public Use
  Company Number: US-ABBOTT-11P-163-0846561-00

PATIENT
  Sex: Female

DRUGS (10)
  1. METHOTREXATE [Concomitant]
     Indication: RHEUMATOID ARTHRITIS
  2. IMURAN [Concomitant]
     Indication: COLITIS ULCERATIVE
  3. LYRICA [Concomitant]
     Indication: FIBROMYALGIA
     Route: 048
  4. HUMIRA [Suspect]
     Indication: RHEUMATOID ARTHRITIS
     Route: 058
     Dates: start: 20071201
  5. LASIX [Concomitant]
     Indication: CARDIAC FAILURE CONGESTIVE
     Route: 048
  6. CYMBALTA [Concomitant]
     Indication: FIBROMYALGIA
  7. LISINOPRIL [Concomitant]
     Indication: CARDIAC FAILURE CONGESTIVE
     Route: 048
  8. ASPIRIN [Concomitant]
     Indication: CARDIAC FAILURE CONGESTIVE
     Route: 048
  9. FOLIC ACID [Concomitant]
     Indication: RHEUMATOID ARTHRITIS
  10. UNKNOWN INHALERS [Concomitant]
     Indication: ASTHMA

REACTIONS (10)
  - ABDOMINAL PAIN [None]
  - BLOOD POTASSIUM DECREASED [None]
  - STAPHYLOCOCCAL INFECTION [None]
  - TOXIC SHOCK SYNDROME STAPHYLOCOCCAL [None]
  - ACROCHORDON [None]
  - VOMITING [None]
  - ABDOMINAL PAIN UPPER [None]
  - CHOLELITHIASIS [None]
  - PRURITUS [None]
  - DIVERTICULITIS [None]
